FAERS Safety Report 24352065 (Version 2)
Quarter: 2025Q1

REPORT INFORMATION
  Report Type: Report from Study
  Country: GB (occurrence: GB)
  Receive Date: 20240923
  Receipt Date: 20250221
  Transmission Date: 20250408
  Serious: Yes (Other)
  Sender: TEVA
  Company Number: GB-TEVA-VS-3236378

PATIENT
  Age: 47 Year
  Sex: Male

DRUGS (1)
  1. COPAXONE [Suspect]
     Active Substance: GLATIRAMER ACETATE
     Indication: Multiple sclerosis
     Route: 065

REACTIONS (18)
  - Injection site swelling [Unknown]
  - Injection site infection [Unknown]
  - Injection site bruising [Unknown]
  - Injection site pain [Unknown]
  - Injection site atrophy [Unknown]
  - Pyrexia [Unknown]
  - Injection site mass [Not Recovered/Not Resolved]
  - Injection site discolouration [Unknown]
  - Chills [Unknown]
  - Injection site erythema [Not Recovered/Not Resolved]
  - Injection site hypoaesthesia [Unknown]
  - Immediate post-injection reaction [Unknown]
  - Injection site pruritus [Not Recovered/Not Resolved]
  - Insomnia [Unknown]
  - Injection site warmth [Unknown]
  - Injection site indentation [Unknown]
  - Wound [Recovered/Resolved]
  - Injection site scar [Unknown]

NARRATIVE: CASE EVENT DATE: 20240501
